FAERS Safety Report 8618497 (Version 4)
Quarter: 2014Q3

REPORT INFORMATION
  Report Type: Spontaneous
  Country: US (occurrence: US)
  Receive Date: 20120618
  Receipt Date: 20140828
  Transmission Date: 20150326
  Serious: Yes (Hospitalization)
  Sender: FDA-Public Use
  Company Number: US-ASTRAZENECA-2012SE36467

PATIENT
  Age: 56 Year
  Sex: Female
  Weight: 90.7 kg

DRUGS (30)
  1. PREVACID [Concomitant]
     Active Substance: LANSOPRAZOLE
     Dates: start: 20010313, end: 20020815
  2. ZYPREXA [Concomitant]
     Active Substance: OLANZAPINE
     Dates: start: 2000
  3. LOSARTAN [Concomitant]
     Active Substance: LOSARTAN
  4. PRILOSEC [Suspect]
     Active Substance: OMEPRAZOLE MAGNESIUM
     Route: 048
     Dates: start: 20080916
  5. PROTONIX [Concomitant]
     Active Substance: PANTOPRAZOLE SODIUM
     Dates: start: 20110303
  6. CELEBREX [Concomitant]
     Active Substance: CELECOXIB
  7. CARISOPRODOL. [Concomitant]
     Active Substance: CARISOPRODOL
  8. TIZANIDINE HCL [Concomitant]
     Active Substance: TIZANIDINE HYDROCHLORIDE
     Dosage: TAKE ONE TABLET THREE TIMES AND TAKE TWO TABLETS AT BEDTIME
  9. SIMVASTATIN. [Concomitant]
     Active Substance: SIMVASTATIN
  10. GEODON [Concomitant]
     Active Substance: ZIPRASIDONE HYDROCHLORIDE\ZIPRASIDONE MESYLATE
  11. FLUOXETINE [Concomitant]
     Active Substance: FLUOXETINE\FLUOXETINE HYDROCHLORIDE
  12. NEXIUM [Suspect]
     Active Substance: ESOMEPRAZOLE MAGNESIUM
     Indication: GASTROOESOPHAGEAL REFLUX DISEASE
     Route: 048
     Dates: start: 20050604
  13. ACIPHEX [Concomitant]
     Active Substance: RABEPRAZOLE SODIUM
  14. PROTONIX [Concomitant]
     Active Substance: PANTOPRAZOLE SODIUM
     Dates: end: 20050226
  15. TAGAMET [Concomitant]
     Active Substance: CIMETIDINE
     Dates: start: 20000331
  16. DIAZEPAM. [Concomitant]
     Active Substance: DIAZEPAM
  17. BUSPIRONE [Concomitant]
     Active Substance: BUSPIRONE HYDROCHLORIDE
  18. LANTUS INSULIN [Concomitant]
     Dosage: 100U/ML
  19. NEXIUM [Suspect]
     Active Substance: ESOMEPRAZOLE MAGNESIUM
     Indication: GASTROOESOPHAGEAL REFLUX DISEASE
     Route: 048
     Dates: start: 20110330
  20. CEFACLOR. [Concomitant]
     Active Substance: CEFACLOR
  21. CLONAZEPAM. [Concomitant]
     Active Substance: CLONAZEPAM
  22. APAP W/HYDROCODONE [Concomitant]
     Dosage: 10/500  TAKE ONE TABLET FOUR TIMES DAILY
  23. PRILOSEC [Suspect]
     Active Substance: OMEPRAZOLE MAGNESIUM
     Route: 048
     Dates: start: 20021031, end: 20030405
  24. MORPHINE SULFATE ER [Concomitant]
     Active Substance: MORPHINE SULFATE
  25. SEROQUEL [Concomitant]
     Active Substance: QUETIAPINE FUMARATE
  26. METFORMIN [Concomitant]
     Active Substance: METFORMIN HYDROCHLORIDE
  27. METOPROLOL [Concomitant]
     Active Substance: METOPROLOL
  28. ZOLPIDEM [Concomitant]
     Active Substance: ZOLPIDEM\ZOLPIDEM TARTRATE
     Dosage: AT BEDTIME
  29. NEXIUM [Suspect]
     Active Substance: ESOMEPRAZOLE MAGNESIUM
     Indication: GASTROOESOPHAGEAL REFLUX DISEASE
     Route: 048
     Dates: start: 20050405, end: 20110330
  30. ACIPHEX [Concomitant]
     Active Substance: RABEPRAZOLE SODIUM
     Dates: start: 20031119

REACTIONS (7)
  - Depression [Unknown]
  - Back pain [Unknown]
  - Osteopenia [Unknown]
  - Diabetes mellitus [Unknown]
  - Multiple fractures [Unknown]
  - Arthritis [Unknown]
  - Osteoporosis [Unknown]

NARRATIVE: CASE EVENT DATE: 20100730
